FAERS Safety Report 6288826-3 (Version None)
Quarter: 2009Q3

REPORT INFORMATION
  Report Type: 
  Country: None (occurrence: None)
  Receive Date: 20090729
  Receipt Date: 20070907
  Transmission Date: 20100115
  Serious: Yes (Hospitalization)
  Sender: FDA-Public Use
  Company Number: US-ASTRAZENECA-2007UW07762

PATIENT
  Age: 35 Year
  Sex: Female
  Weight: 99.8 kg

DRUGS (29)
  1. SEROQUEL [Suspect]
     Indication: SLEEP DISORDER THERAPY
     Route: 048
     Dates: start: 19990101, end: 20050101
  2. SEROQUEL [Suspect]
     Indication: BIPOLAR DISORDER
     Route: 048
     Dates: start: 19990101, end: 20050101
  3. SEROQUEL [Suspect]
     Dosage: 25 MG TO 300 MG
     Route: 048
     Dates: start: 19990628
  4. SEROQUEL [Suspect]
     Dosage: 25 MG TO 300 MG
     Route: 048
     Dates: start: 19990628
  5. GEODON [Suspect]
     Dates: start: 20040101, end: 20060101
  6. GEODON [Suspect]
     Route: 048
     Dates: start: 20020415
  7. AMBIEN [Concomitant]
     Dates: start: 20060101
  8. XANAX [Concomitant]
     Dates: start: 20060101
  9. XANAX [Concomitant]
     Route: 048
     Dates: start: 20060406
  10. WELLBUTRIN [Concomitant]
     Indication: BIPOLAR DISORDER
     Dosage: 100 MG TO 400 MG BID
     Route: 048
     Dates: start: 19990721
  11. ZYPREXA [Concomitant]
     Route: 048
     Dates: start: 19990721
  12. BENADRYL [Concomitant]
     Route: 048
     Dates: start: 19990721
  13. LOPRESSOR [Concomitant]
     Route: 048
     Dates: start: 20020316
  14. VIOXX [Concomitant]
     Route: 048
     Dates: start: 20020316
  15. PREVACID [Concomitant]
     Route: 048
     Dates: start: 20020415
  16. VALTREX [Concomitant]
     Route: 048
     Dates: start: 20020415
  17. PAXIL [Concomitant]
     Route: 048
     Dates: start: 20020415
  18. CLARITIN [Concomitant]
     Indication: HYPERSENSITIVITY
     Route: 048
     Dates: start: 20020618
  19. ACIPHEX [Concomitant]
     Route: 048
     Dates: start: 20040503
  20. LEXAPRO [Concomitant]
     Route: 048
     Dates: start: 20040503
  21. SINGULAIR [Concomitant]
     Route: 048
     Dates: start: 20040503
  22. LORAZEPAM [Concomitant]
     Route: 048
     Dates: start: 20040927
  23. PROTONIX [Concomitant]
     Route: 048
     Dates: start: 20041003
  24. ULTRACET [Concomitant]
     Indication: MIGRAINE
     Route: 048
     Dates: start: 20050324
  25. PANTOPRAZOLE SODIUM [Concomitant]
     Route: 048
     Dates: start: 20060311
  26. ACETAMINOPHEN [Concomitant]
     Route: 048
     Dates: start: 20060312
  27. ASPIRIN [Concomitant]
     Route: 048
     Dates: start: 20060312
  28. TRICOR [Concomitant]
     Route: 048
     Dates: start: 20060406
  29. PRILOSEC [Concomitant]
     Route: 048
     Dates: start: 20070209

REACTIONS (8)
  - BLOOD CHOLESTEROL INCREASED [None]
  - DEPRESSION [None]
  - DIABETES MELLITUS [None]
  - DYSLIPIDAEMIA [None]
  - HYPERLIPIDAEMIA [None]
  - OBESITY [None]
  - SUICIDAL IDEATION [None]
  - WEIGHT INCREASED [None]
